FAERS Safety Report 5582925-7 (Version None)
Quarter: 2008Q1

REPORT INFORMATION
  Report Type: 
  Country: None (occurrence: None)
  Receive Date: 20080107
  Receipt Date: 20071228
  Transmission Date: 20080703
  Serious: Yes (Hospitalization)
  Sender: FDA-Public Use
  Company Number: GB-ROCHE-522384

PATIENT
  Age: 38 Year
  Sex: Female
  Weight: 163 kg

DRUGS (3)
  1. ORLISTAT [Suspect]
     Indication: OBESITY
     Route: 048
     Dates: start: 20070419, end: 20070903
  2. DICLOFENAC [Concomitant]
     Route: 048
     Dates: start: 20070704
  3. DIAZEPAM [Concomitant]
     Route: 048
     Dates: start: 20070704

REACTIONS (1)
  - MENINGITIS VIRAL [None]
